FAERS Safety Report 9696169 (Version 1)
Quarter: 2013Q4

REPORT INFORMATION
  Report Type: Spontaneous
  Country: IT (occurrence: IT)
  Receive Date: 20131119
  Receipt Date: 20131119
  Transmission Date: 20140711
  Serious: Yes (Hospitalization)
  Sender: FDA-Public Use
  Company Number: IT-ACTAVIS-2013-21052

PATIENT
  Age: 11 Year
  Sex: Female

DRUGS (2)
  1. IBUPROFEN (UNKNOWN) [Suspect]
     Indication: PAIN IN EXTREMITY
     Dosage: UNK, UNK
     Route: 048
     Dates: start: 20130619, end: 20130623
  2. BETAMETHASONE [Suspect]
     Indication: PAIN IN EXTREMITY
     Dosage: 400MG, DAILY
     Route: 048
     Dates: start: 20130619, end: 20130626

REACTIONS (1)
  - Abdominal pain [Recovering/Resolving]
